FAERS Safety Report 11475809 (Version 2)
Quarter: 2015Q3

REPORT INFORMATION
  Report Type: Spontaneous
  Country: US (occurrence: US)
  Receive Date: 20150909
  Receipt Date: 20150922
  Transmission Date: 20151125
  Serious: No
  Sender: FDA-Public Use
  Company Number: US-TEVA-591191ACC

PATIENT
  Age: 22 Year
  Sex: Female
  Weight: 63.56 kg

DRUGS (1)
  1. PLAN B ONE-STEP [Suspect]
     Active Substance: LEVONORGESTREL
     Indication: POST COITAL CONTRACEPTION
     Dates: start: 20150814, end: 20150814

REACTIONS (6)
  - Nausea [Recovering/Resolving]
  - Breast discomfort [Recovering/Resolving]
  - Gastrooesophageal reflux disease [Recovering/Resolving]
  - Intentional product misuse [Recovered/Resolved]
  - Nipple pain [Recovering/Resolving]
  - Vaginal discharge [Recovering/Resolving]

NARRATIVE: CASE EVENT DATE: 20150814
